FAERS Safety Report 15299897 (Version 1)
Quarter: 2018Q4

REPORT INFORMATION
  Report Type: Spontaneous
  Country: NZ (occurrence: NZ)
  Receive Date: 20180821
  Receipt Date: 20180821
  Transmission Date: 20190204
  Serious: Yes (Hospitalization)
  Sender: FDA-Public Use
  Company Number: NZ-VIVIMED-2016SP021084

PATIENT

DRUGS (2)
  1. LOSARTAN. [Suspect]
     Active Substance: LOSARTAN
     Indication: PRODUCT USED FOR UNKNOWN INDICATION
     Dosage: 2700 G, UNK
     Route: 048
  2. AMLODIPINE [Suspect]
     Active Substance: AMLODIPINE BESYLATE
     Indication: PRODUCT USED FOR UNKNOWN INDICATION
     Dosage: 200 MG, UNK
     Route: 048

REACTIONS (6)
  - Vomiting [Unknown]
  - Anuria [Recovered/Resolved]
  - Metabolic acidosis [Unknown]
  - Respiratory failure [Unknown]
  - Acute kidney injury [Recovered/Resolved]
  - Intentional overdose [Unknown]
